FAERS Safety Report 4350887-6 (Version None)
Quarter: 2004Q2

REPORT INFORMATION
  Report Type: 
  Country: None (occurrence: None)
  Receive Date: 20040428
  Receipt Date: 20040412
  Transmission Date: 20050107
  Serious: Yes (Other)
  Sender: FDA-Public Use
  Company Number: US_0404102308

PATIENT
  Age: 57 Year
  Sex: Female
  Weight: 105 kg

DRUGS (1)
  1. FORTEO [Suspect]
     Indication: OSTEOPOROSIS
     Dates: start: 20040313

REACTIONS (2)
  - PROCEDURAL SITE REACTION [None]
  - STAPHYLOCOCCAL ABSCESS [None]
